FAERS Safety Report 20722470 (Version 9)
Quarter: 2022Q4

REPORT INFORMATION
  Report Type: Report from Study
  Country: US (occurrence: US)
  Receive Date: 20220418
  Receipt Date: 20221203
  Transmission Date: 20230113
  Serious: Yes (Other)
  Sender: FDA-Public Use
  Company Number: US-NOVARTISTESTPH-NVSC2022US085899

PATIENT
  Age: 62 Year
  Sex: Female

DRUGS (1)
  1. KESIMPTA [Suspect]
     Active Substance: OFATUMUMAB
     Indication: Product used for unknown indication
     Dosage: UNK
     Route: 065

REACTIONS (10)
  - Facial bones fracture [Unknown]
  - Fatigue [Recovering/Resolving]
  - Gait disturbance [Unknown]
  - Fall [Unknown]
  - Upper limb fracture [Unknown]
  - Lip injury [Unknown]
  - Alopecia [Unknown]
  - COVID-19 [Recovering/Resolving]
  - Balance disorder [Unknown]
  - Upper respiratory tract infection [Recovering/Resolving]

NARRATIVE: CASE EVENT DATE: 20220801
